FAERS Safety Report 21413082 (Version 3)
Quarter: 2023Q1

REPORT INFORMATION
  Report Type: Spontaneous
  Country: JP (occurrence: JP)
  Receive Date: 20221005
  Receipt Date: 20230330
  Transmission Date: 20230417
  Serious: Yes (Disabling)
  Sender: FDA-Public Use
  Company Number: JP-BIOCRYST PHARMACEUTICALS, INC.-2021BCR00576

PATIENT
  Age: 60 Year
  Sex: Male
  Weight: 64 kg

DRUGS (7)
  1. ORLADEYO [Suspect]
     Active Substance: BEROTRALSTAT HYDROCHLORIDE
     Indication: Hereditary angioedema with C1 esterase inhibitor deficiency
     Dosage: 150 MG, QD
     Route: 048
     Dates: start: 20211020, end: 20211117
  2. ORLADEYO [Suspect]
     Active Substance: BEROTRALSTAT HYDROCHLORIDE
     Indication: Hereditary angioedema
  3. TRANSAMIN [Concomitant]
     Active Substance: TRANEXAMIC ACID
     Indication: Hereditary angioedema
     Dosage: UNK UNK, QD
     Route: 048
     Dates: start: 20110823
  4. BERINERT P [Concomitant]
     Active Substance: HUMAN C1-ESTERASE INHIBITOR
     Indication: Hereditary angioedema
     Dosage: UNK UNK, QD
     Route: 042
     Dates: start: 20150209
  5. BISOPROLOL FUMARATE [Concomitant]
     Active Substance: BISOPROLOL FUMARATE
     Indication: Cardiomyopathy
     Dosage: 2.5 MG, QD
     Route: 048
     Dates: start: 20211222
  6. VALSARTAN [Concomitant]
     Active Substance: VALSARTAN
     Indication: Cardiomyopathy
     Dosage: 40 MG, QD
     Route: 048
     Dates: start: 20211222
  7. DAPAGLIFLOZIN [Concomitant]
     Active Substance: DAPAGLIFLOZIN
     Indication: Cardiomyopathy
     Dosage: 10 MG, QD
     Route: 048
     Dates: start: 20211222

REACTIONS (2)
  - Cardiomyopathy [Recovering/Resolving]
  - Palpitations [Unknown]

NARRATIVE: CASE EVENT DATE: 20211117
